FAERS Safety Report 6057793-X (Version None)
Quarter: 2009Q1

REPORT INFORMATION
  Report Type: 
  Country: None (occurrence: None)
  Receive Date: 20090129
  Receipt Date: 20090123
  Transmission Date: 20090719
  Serious: Yes (Other)
  Sender: FDA-Public Use
  Company Number: PHEH2008US08457

PATIENT
  Sex: Female

DRUGS (4)
  1. VIVELLE-DOT [Suspect]
     Dosage: UNK
     Route: 062
     Dates: start: 20070401
  2. HYDROCORTISONE [Concomitant]
     Dosage: 27 MG, UNK
  3. CYTOMEL [Concomitant]
     Dosage: 68 MCG QD
  4. PROMETRIUM [Concomitant]
     Dosage: 100 MG, QD

REACTIONS (9)
  - BLOOD CALCIUM INCREASED [None]
  - CHEST DISCOMFORT [None]
  - DRUG INEFFECTIVE [None]
  - EYE MOVEMENT DISORDER [None]
  - HORMONE LEVEL ABNORMAL [None]
  - HYPOAESTHESIA FACIAL [None]
  - LIMB DISCOMFORT [None]
  - MUSCULAR WEAKNESS [None]
  - SURGERY [None]
